FAERS Safety Report 8355358-8 (Version None)
Quarter: 2012Q2

REPORT INFORMATION
  Report Type: 
  Country: None (occurrence: None)
  Receive Date: 20120511
  Receipt Date: 20120508
  Transmission Date: 20120825
  Serious: Yes (Other)
  Sender: FDA-Public Use
  Company Number: AU-ROCHE-1067415

PATIENT
  Sex: Female

DRUGS (5)
  1. PLAQUENIL [Concomitant]
  2. MOBIC [Concomitant]
  3. METHOTREXATE [Concomitant]
  4. ACTEMRA [Suspect]
     Indication: RHEUMATOID ARTHRITIS
     Route: 065
     Dates: start: 20120404
  5. PREDNISONE TAB [Concomitant]

REACTIONS (2)
  - FATIGUE [None]
  - TOOTH INFECTION [None]
